FAERS Safety Report 5368780-9 (Version None)
Quarter: 2007Q2

REPORT INFORMATION
  Report Type: 
  Country: None (occurrence: None)
  Receive Date: 20070621
  Receipt Date: 20070621
  Transmission Date: 20071010
  Serious: Yes (Hospitalization)
  Sender: FDA-Public Use
  Company Number: None

PATIENT
  Sex: Male
  Weight: 59 kg

DRUGS (1)
  1. CISPLATIN [Suspect]
     Dosage: 172 MG
     Dates: end: 20070529

REACTIONS (5)
  - BACTERAEMIA [None]
  - CENTRAL LINE INFECTION [None]
  - CHILLS [None]
  - DEEP VEIN THROMBOSIS [None]
  - PYREXIA [None]
